FAERS Safety Report 8154783-8 (Version None)
Quarter: 2012Q1

REPORT INFORMATION
  Report Type: 
  Country: None (occurrence: None)
  Receive Date: 20120221
  Receipt Date: 20120209
  Transmission Date: 20120608
  Serious: Yes (Other)
  Sender: FDA-Public Use
  Company Number: PHFR2012GB001128

PATIENT
  Age: 56 Year
  Sex: Female

DRUGS (4)
  1. HYGROTON [Suspect]
  2. LISADOR [Suspect]
     Indication: HYPERSENSITIVITY
  3. DIOVAN [Suspect]
  4. ALDACTONE [Suspect]

REACTIONS (3)
  - HYPERSENSITIVITY [None]
  - ACCIDENT AT HOME [None]
  - LOWER LIMB FRACTURE [None]
